FAERS Safety Report 4983427-9 (Version None)
Quarter: 2006Q2

REPORT INFORMATION
  Report Type: 
  Country: None (occurrence: None)
  Receive Date: 20060426
  Receipt Date: 20060419
  Transmission Date: 20061013
  Serious: Yes (Other)
  Sender: FDA-Public Use
  Company Number: US-MERCK-0604USA03441

PATIENT
  Sex: Male

DRUGS (1)
  1. VIOXX [Suspect]
     Route: 048
     Dates: end: 20021001

REACTIONS (5)
  - ADVERSE EVENT [None]
  - ANXIETY [None]
  - CARDIAC ARREST [None]
  - INJURY [None]
  - PAIN [None]
